FAERS Safety Report 5351544-X (Version None)
Quarter: 2007Q2

REPORT INFORMATION
  Report Type: 
  Country: None (occurrence: None)
  Receive Date: 20070608
  Receipt Date: 20070606
  Transmission Date: 20071010
  Serious: Yes (Other)
  Sender: FDA-Public Use
  Company Number: GB-MERCK-0706GBR00032

PATIENT
  Age: 76 Year
  Sex: Female
  Weight: 69 kg

DRUGS (6)
  1. ZOCOR [Suspect]
     Route: 048
     Dates: start: 20060605, end: 20060913
  2. ALLOPURINOL [Concomitant]
     Indication: GOUT
     Route: 048
     Dates: start: 20060619
  3. AMLODIPINE BESYLATE [Concomitant]
     Indication: HYPERTENSION
     Route: 048
     Dates: start: 20040629
  4. ASPIRIN [Concomitant]
     Indication: DIABETES MELLITUS
     Route: 048
     Dates: start: 20060112
  5. ATENOLOL [Concomitant]
     Indication: HYPERTENSION
     Route: 048
     Dates: start: 20040629
  6. METFORMIN [Concomitant]
     Indication: DIABETES MELLITUS
     Route: 048
     Dates: start: 20051222

REACTIONS (2)
  - DERMATITIS [None]
  - LICHENOID KERATOSIS [None]
